FAERS Safety Report 10360819 (Version 4)
Quarter: 2014Q3

REPORT INFORMATION
  Report Type: Spontaneous
  Country: JP (occurrence: JP)
  Receive Date: 20140804
  Receipt Date: 20140903
  Transmission Date: 20150326
  Serious: Yes (Other)
  Sender: FDA-Public Use
  Company Number: JP-GLAXOSMITHKLINE-B1019881A

PATIENT
  Age: 42 Year
  Sex: Female
  Weight: 55 kg

DRUGS (5)
  1. LAMICTAL [Suspect]
     Active Substance: LAMOTRIGINE
     Indication: DEPRESSION
     Route: 048
  2. WYPAX [Concomitant]
     Active Substance: LORAZEPAM
     Indication: DEPRESSION
     Route: 048
  3. MYSLEE [Concomitant]
     Active Substance: ZOLPIDEM TARTRATE
     Indication: DEPRESSION
     Route: 048
  4. LITHIUM CARBONATE. [Suspect]
     Active Substance: LITHIUM CARBONATE
     Indication: DEPRESSION
     Route: 048
  5. CONSTAN [Concomitant]
     Active Substance: ALPRAZOLAM
     Indication: DEPRESSION
     Route: 048

REACTIONS (7)
  - Altered state of consciousness [Unknown]
  - Blood potassium abnormal [Unknown]
  - Blood calcium abnormal [Unknown]
  - Toxicity to various agents [Unknown]
  - Electrocardiogram QT prolonged [Unknown]
  - Electrocardiogram T wave abnormal [Unknown]
  - Overdose [Unknown]

NARRATIVE: CASE EVENT DATE: 20140718
